FAERS Safety Report 5750324-0 (Version None)
Quarter: 2008Q2

REPORT INFORMATION
  Report Type: 
  Country: None (occurrence: None)
  Receive Date: 20080521
  Receipt Date: 20080521
  Transmission Date: 20081010
  Serious: Yes (Hospitalization)
  Sender: FDA-Public Use
  Company Number: None

PATIENT
  Age: 69 Year
  Sex: Male
  Weight: 61.6 kg

DRUGS (2)
  1. BEVACIZUMAB [Suspect]
     Indication: RECTAL CANCER
     Dosage: 345 MG ONCE IV
     Route: 042
     Dates: start: 20071106, end: 20071106
  2. NAPROXEN [Suspect]
     Indication: PAIN
     Dosage: 500 MG BID PO
     Route: 048
     Dates: start: 20070828, end: 20080215

REACTIONS (7)
  - GASTRIC ANTRAL VASCULAR ECTASIA [None]
  - GASTRIC HAEMORRHAGE [None]
  - GASTRODUODENAL ULCER [None]
  - HAEMATEMESIS [None]
  - NAUSEA [None]
  - UNEVALUABLE EVENT [None]
  - VOMITING [None]
